FAERS Safety Report 23096959 (Version 1)
Quarter: 2023Q4

REPORT INFORMATION
  Report Type: Other
  Country: GB (occurrence: GB)
  Receive Date: 20231023
  Receipt Date: 20231023
  Transmission Date: 20240110
  Serious: Yes (Other)
  Sender: FDA-Public Use
  Company Number: GB-GLENMARK PHARMACEUTICALS-2023GMK085835

PATIENT

DRUGS (14)
  1. ROSUVASTATIN CALCIUM [Suspect]
     Active Substance: ROSUVASTATIN CALCIUM
     Indication: Ill-defined disorder
     Dosage: UNK
     Route: 065
     Dates: start: 20230804
  2. ASPIRIN [Concomitant]
     Active Substance: ASPIRIN
     Indication: Ill-defined disorder
     Dosage: 1 DOSAGE FORM, QD, TAKE ONE DAILY FOR POSSIBLE INTERMITTENT CLAUDI...
     Route: 065
     Dates: start: 20230911
  3. CALCIUM CARBONATE [Concomitant]
     Active Substance: CALCIUM CARBONATE
     Indication: Ill-defined disorder
     Dosage: QD, 2 DAILY FOR BONE PROTECTION
     Route: 065
     Dates: start: 20221201
  4. CALCIUM CARBONATE [Concomitant]
     Active Substance: CALCIUM CARBONATE
     Indication: Bone disorder
  5. CALCIUM CARBONATE [Concomitant]
     Active Substance: CALCIUM CARBONATE
     Indication: Prophylaxis
  6. ESTRIOL [Concomitant]
     Active Substance: ESTRIOL
     Indication: Ill-defined disorder
     Dosage: APPLY AT NIGHT TWICE WEEKLY
     Route: 065
     Dates: start: 20221201
  7. EZETIMIBE [Concomitant]
     Active Substance: EZETIMIBE
     Indication: Ill-defined disorder
     Dosage: UNK UNK, QD (TAKE ONE DAILY)
     Route: 065
     Dates: start: 20230804, end: 20230922
  8. MIRTAZAPINE [Concomitant]
     Active Substance: MIRTAZAPINE
     Indication: Ill-defined disorder
     Dosage: UNK UNK, QD (TAKE ONE DAILY)
     Route: 065
     Dates: start: 20221201
  9. NAPROXEN [Concomitant]
     Active Substance: NAPROXEN
     Indication: Ill-defined disorder
     Dosage: UNK UNK, TID (TAKE ONE 3 TIMES/DAY)
     Route: 065
     Dates: start: 20230719, end: 20230720
  10. OMEPRAZOLE [Concomitant]
     Active Substance: OMEPRAZOLE
     Indication: Ill-defined disorder
     Dosage: UNK UNK, QD (TAKE ONE DAILY TO PROTECT STOMACH WHILST ON ANT..)
     Route: 065
     Dates: start: 20230719
  11. PRAVASTATIN [Concomitant]
     Active Substance: PRAVASTATIN
     Indication: Ill-defined disorder
     Dosage: 1 DOSAGE FORM, HS (TAKE ONE TABLET AT NIGH)
     Route: 065
     Dates: start: 20230922
  12. PRAVASTATIN [Concomitant]
     Active Substance: PRAVASTATIN
     Indication: Blood cholesterol increased
  13. ROSUVASTATIN [Concomitant]
     Active Substance: ROSUVASTATIN
     Indication: Ill-defined disorder
     Dosage: UNK UNK, QD (AKE ONE DAILY)
     Route: 065
     Dates: start: 20230706, end: 20230804
  14. ROSUVASTATIN [Concomitant]
     Active Substance: ROSUVASTATIN
     Indication: Cardiovascular event prophylaxis

REACTIONS (2)
  - Adverse drug reaction [Recovered/Resolved]
  - Skin reaction [Recovered/Resolved]

NARRATIVE: CASE EVENT DATE: 20230809
